FAERS Safety Report 12859866 (Version 1)
Quarter: 2016Q4

REPORT INFORMATION
  Report Type: Spontaneous
  Country: US (occurrence: US)
  Receive Date: 20161018
  Receipt Date: 20161018
  Transmission Date: 20170207
  Serious: No
  Sender: FDA-Public Use
  Company Number: None

PATIENT
  Age: 36 Year
  Sex: Female

DRUGS (1)
  1. REBIF [Suspect]
     Active Substance: INTERFERON BETA-1A
     Indication: MULTIPLE SCLEROSIS
     Route: 058
     Dates: start: 20160513

REACTIONS (5)
  - Pruritus [None]
  - Injection site pruritus [None]
  - Injection site pain [None]
  - Muscular weakness [None]
  - Diarrhoea [None]

NARRATIVE: CASE EVENT DATE: 20161001
